FAERS Safety Report 8921972 (Version 1)
Quarter: 2012Q4

REPORT INFORMATION
  Report Type: Spontaneous
  Country: US (occurrence: None)
  Receive Date: 20121119
  Receipt Date: 20121119
  Transmission Date: 20130627
  Serious: Yes (Disabling)
  Sender: FDA-Public Use
  Company Number: None

PATIENT
  Age: 32 Year
  Sex: Female
  Weight: 97.52 kg

DRUGS (1)
  1. DEPO PROVERA [Suspect]

REACTIONS (2)
  - Anaemia [None]
  - Menorrhagia [None]
